FAERS Safety Report 8238183-8 (Version None)
Quarter: 2012Q1

REPORT INFORMATION
  Report Type: 
  Country: None (occurrence: None)
  Receive Date: 20120327
  Receipt Date: 20120314
  Transmission Date: 20120608
  Serious: Yes (Other)
  Sender: FDA-Public Use
  Company Number: US-ROCHE-1052386

PATIENT
  Sex: Female

DRUGS (8)
  1. BONIVA [Suspect]
     Indication: OSTEOPENIA
  2. BONIVA [Suspect]
     Indication: OSTEOPOROSIS
     Dates: start: 20050101, end: 20080101
  3. FOSAMAX [Suspect]
     Indication: OSTEOPOROSIS
     Dates: start: 20050101, end: 20080101
  4. FOSAMAX [Suspect]
     Indication: OSTEOPENIA
  5. ZOMETA [Suspect]
     Indication: OSTEOPOROSIS
     Dates: start: 20050101, end: 20080101
  6. ZOMETA [Suspect]
     Indication: OSTEOPENIA
  7. RECLAST [Suspect]
     Indication: OSTEOPOROSIS
     Dates: start: 20050101, end: 20080101
  8. RECLAST [Suspect]
     Indication: OSTEOPENIA

REACTIONS (2)
  - EMOTIONAL DISTRESS [None]
  - FEMUR FRACTURE [None]
